FAERS Safety Report 25548458 (Version 1)
Quarter: 2025Q3

REPORT INFORMATION
  Report Type: Spontaneous
  Country: US (occurrence: US)
  Receive Date: 20250714
  Receipt Date: 20250714
  Transmission Date: 20251021
  Serious: No
  Sender: GLENMARK
  Company Number: US-GLENMARK PHARMACEUTICALS-2024GMK093238

PATIENT

DRUGS (3)
  1. ONDANSETRON [Suspect]
     Active Substance: ONDANSETRON
     Indication: Food poisoning
     Route: 048
  2. ONDANSETRON [Suspect]
     Active Substance: ONDANSETRON
     Indication: Vomiting
  3. ONDANSETRON [Suspect]
     Active Substance: ONDANSETRON
     Indication: Nausea

REACTIONS (2)
  - Product prescribing issue [Unknown]
  - Intercepted product prescribing error [Unknown]
